FAERS Safety Report 7644716-2 (Version None)
Quarter: 2011Q3

REPORT INFORMATION
  Report Type: 
  Country: None (occurrence: None)
  Receive Date: 20110729
  Receipt Date: 20110726
  Transmission Date: 20111222
  Serious: Yes (Death)
  Sender: FDA-Public Use
  Company Number: BR-ACTELION-A-CH2011-49317

PATIENT
  Sex: Female
  Weight: 11 kg

DRUGS (5)
  1. PHENOBARBITAL TAB [Concomitant]
  2. ZAVESCA [Suspect]
     Indication: TAY-SACHS DISEASE
     Dosage: 100 MG, TID
     Route: 048
     Dates: end: 20110516
  3. CLOBAZAM [Concomitant]
  4. TOPIRAMATE [Concomitant]
  5. ZAVESCA [Suspect]
     Dosage: 100 MG, QD
     Route: 048
     Dates: start: 20091101

REACTIONS (3)
  - EPILEPSY [None]
  - SUDDEN DEATH [None]
  - CARDIAC ARREST [None]
